FAERS Safety Report 16100182 (Version 2)
Quarter: 2019Q2

REPORT INFORMATION
  Report Type: Spontaneous
  Country: US (occurrence: US)
  Receive Date: 20190321
  Receipt Date: 20190617
  Transmission Date: 20190711
  Serious: No
  Sender: FDA-Public Use
  Company Number: US-VIFOR (INTERNATIONAL) INC.-VIT-2019-01832

PATIENT
  Age: 69 Year
  Sex: Female
  Weight: 135 kg

DRUGS (2)
  1. HEPARIN SODIUM. [Concomitant]
     Active Substance: HEPARIN SODIUM
  2. MIRCERA [Suspect]
     Active Substance: METHOXY POLYETHYLENE GLYCOL-EPOETIN BETA
     Indication: NEPHROGENIC ANAEMIA
     Dosage: DOSE : 75 MCG TWICE
     Route: 040
     Dates: start: 20160106, end: 20160116

REACTIONS (4)
  - Anxiety [Recovered/Resolved]
  - Drug hypersensitivity [Recovered/Resolved]
  - Feeling abnormal [Recovered/Resolved]
  - Dyspnoea [Recovered/Resolved]

NARRATIVE: CASE EVENT DATE: 201601
